FAERS Safety Report 12400904 (Version 1)
Quarter: 2016Q2

REPORT INFORMATION
  Report Type: Spontaneous
  Country: US (occurrence: None)
  Receive Date: 20160524
  Receipt Date: 20160524
  Transmission Date: 20160815
  Serious: No
  Sender: FDA-Public Use
  Company Number: None

PATIENT
  Age: 60 Year
  Sex: Female

DRUGS (5)
  1. CEPHALEXIN. [Concomitant]
     Active Substance: CEPHALEXIN
  2. REBIF [Suspect]
     Active Substance: INTERFERON BETA-1A
     Indication: MULTIPLE SCLEROSIS
     Route: 058
     Dates: start: 20100420
  3. METHENAM [Concomitant]
  4. VESICARE [Concomitant]
     Active Substance: SOLIFENACIN SUCCINATE
  5. REBIF INJ [Concomitant]

REACTIONS (2)
  - Visual impairment [None]
  - Drug dose omission [None]

NARRATIVE: CASE EVENT DATE: 2016
